FAERS Safety Report 6753288-6 (Version None)
Quarter: 2010Q2

REPORT INFORMATION
  Report Type: 
  Country: None (occurrence: None)
  Receive Date: 20100603
  Receipt Date: 20100520
  Transmission Date: 20101027
  Serious: Yes (Hospitalization)
  Sender: FDA-Public Use
  Company Number: US-ELI_LILLY_AND_COMPANY-US201005006837

PATIENT
  Sex: Female

DRUGS (8)
  1. FORTEO [Suspect]
     Indication: OSTEOPOROSIS
     Dosage: 20 UG, DAILY (1/D)
     Dates: start: 20081206
  2. LEVOTHYROXINE SODIUM [Concomitant]
  3. PREDNISONE [Concomitant]
  4. VALTREX [Concomitant]
  5. PROTONIX [Concomitant]
  6. MEPRON [Concomitant]
  7. PYRIDOSTIGMINE BROMIDE [Concomitant]
  8. CELL CEPT [Concomitant]

REACTIONS (3)
  - EYELID DISORDER [None]
  - GASTROENTERITIS VIRAL [None]
  - HERPES ZOSTER [None]
